FAERS Safety Report 15948529 (Version 1)
Quarter: 2019Q1

REPORT INFORMATION
  Report Type: Spontaneous
  Country: DK (occurrence: DK)
  Receive Date: 20190212
  Receipt Date: 20190212
  Transmission Date: 20190417
  Serious: Yes (Hospitalization, Disabling)
  Sender: FDA-Public Use
  Company Number: DK-ACCORD-106512

PATIENT
  Age: 57 Year
  Sex: Female

DRUGS (1)
  1. SIMVASTATIN. [Suspect]
     Active Substance: SIMVASTATIN
     Indication: HYPERCHOLESTEROLAEMIA
     Route: 048

REACTIONS (8)
  - Muscular weakness [Recovering/Resolving]
  - Gait disturbance [Unknown]
  - Immune-mediated necrotising myopathy [Unknown]
  - Fatigue [Unknown]
  - Dysstasia [Unknown]
  - Dyspnoea [Unknown]
  - Emphysema [Unknown]
  - Cough [Unknown]

NARRATIVE: CASE EVENT DATE: 201306
